FAERS Safety Report 20330075 (Version 3)
Quarter: 2022Q1

REPORT INFORMATION
  Report Type: Spontaneous
  Country: US (occurrence: None)
  Receive Date: 20220113
  Receipt Date: 20220222
  Transmission Date: 20220423
  Serious: Yes (Hospitalization)
  Sender: FDA-Public Use
  Company Number: US-ROCHE-3000369

PATIENT
  Sex: Female

DRUGS (12)
  1. ESBRIET [Suspect]
     Active Substance: PIRFENIDONE
     Indication: Idiopathic pulmonary fibrosis
     Route: 048
     Dates: start: 20211208
  2. GABAPENTIN [Concomitant]
     Active Substance: GABAPENTIN
  3. ADVAIR DISKUS [Concomitant]
     Active Substance: FLUTICASONE PROPIONATE\SALMETEROL XINAFOATE
  4. AZITHROMYCIN [Concomitant]
     Active Substance: AZITHROMYCIN
  5. BUSPIRONE [Concomitant]
     Active Substance: BUSPIRONE HYDROCHLORIDE
  6. LANSOPRAZOLE [Concomitant]
     Active Substance: LANSOPRAZOLE
  7. NAC (UNITED STATES) [Concomitant]
  8. NALOXONE [Concomitant]
     Active Substance: NALOXONE
     Dosage: 0.4 MG/ML
  9. OFEV [Concomitant]
     Active Substance: NINTEDANIB
  10. OXYCODONE [Concomitant]
     Active Substance: OXYCODONE
  11. PREDNISONE [Concomitant]
     Active Substance: PREDNISONE
  12. RANITIDINE [Concomitant]
     Active Substance: RANITIDINE

REACTIONS (6)
  - Lung disorder [Unknown]
  - COVID-19 pneumonia [Unknown]
  - Dizziness [Unknown]
  - Vision blurred [Unknown]
  - Abdominal distension [Unknown]
  - Arthralgia [Unknown]
